FAERS Safety Report 8879477 (Version 1)
Quarter: 2012Q4

REPORT INFORMATION
  Report Type: 
  Country: BR (occurrence: BR)
  Receive Date: 20121031
  Receipt Date: 20121031
  Transmission Date: 20130627
  Serious: Yes (Death, Hospitalization)
  Sender: FDA-Public Use
  Company Number: BR-ASTRAZENECA-2012SE31762

PATIENT
  Age: 52 Year
  Sex: Male

DRUGS (2)
  1. ATACAND HCT [Suspect]
     Dosage: 16 + 12.5 mg
     Route: 048
     Dates: start: 2011, end: 201205
  2. ATACAND [Suspect]
     Route: 048
     Dates: start: 201205

REACTIONS (2)
  - Hyponatraemia [Not Recovered/Not Resolved]
  - Neoplasm malignant [Fatal]
